FAERS Safety Report 14498257 (Version 1)
Quarter: 2018Q1

REPORT INFORMATION
  Report Type: Spontaneous
  Country: BE (occurrence: BE)
  Receive Date: 20180207
  Receipt Date: 20180207
  Transmission Date: 20180509
  Serious: Yes (Other)
  Sender: FDA-Public Use
  Company Number: BE-GALDERMA-BE18001701

PATIENT
  Age: 18 Year
  Sex: Female

DRUGS (2)
  1. CLOBETASOL [Suspect]
     Active Substance: CLOBETASOL
     Indication: PSORIASIS
     Dosage: ALMOST EVERY DAY, FOR APPROXIMATELY 4 YEARS
     Route: 061
  2. USTEKINUMAB [Concomitant]
     Active Substance: USTEKINUMAB
     Indication: PSORIASIS

REACTIONS (5)
  - Withdrawal syndrome [Recovering/Resolving]
  - Cushing^s syndrome [Recovering/Resolving]
  - Product use issue [Recovering/Resolving]
  - Adrenal insufficiency [Recovering/Resolving]
  - Intentional overdose [Recovering/Resolving]
